FAERS Safety Report 4913632-9 (Version None)
Quarter: 2006Q1

REPORT INFORMATION
  Report Type: 
  Country: None (occurrence: None)
  Receive Date: 20060216
  Receipt Date: 20060202
  Transmission Date: 20060701
  Serious: Yes (Other)
  Sender: FDA-Public Use
  Company Number: US-AMGEN-US167473

PATIENT
  Age: 58 Year
  Sex: Male

DRUGS (1)
  1. NEULASTA [Suspect]
     Indication: NEUTROPENIA
     Dates: start: 20050701

REACTIONS (3)
  - DISEASE PROGRESSION [None]
  - MALIGNANT NEOPLASM PROGRESSION [None]
  - MULTIPLE MYELOMA [None]
